FAERS Safety Report 4675723-X (Version None)
Quarter: 2005Q2

REPORT INFORMATION
  Report Type: 
  Country: None (occurrence: None)
  Receive Date: 20050527
  Receipt Date: 20050222
  Transmission Date: 20051028
  Serious: No
  Sender: FDA-Public Use
  Company Number: US-BRISTOL-MYERS SQUIBB COMPANY-12871257

PATIENT
  Age: 57 Year
  Sex: Male
  Weight: 79 kg

DRUGS (4)
  1. ERBITUX [Suspect]
     Indication: COLON CANCER METASTATIC
  2. AVASTIN [Concomitant]
  3. COUMADIN [Concomitant]
  4. IRINOTECAN [Concomitant]

REACTIONS (1)
  - DERMATITIS ACNEIFORM [None]
